FAERS Safety Report 23388301 (Version 1)
Quarter: 2024Q1

REPORT INFORMATION
  Report Type: Spontaneous
  Country: US (occurrence: None)
  Receive Date: 20240109
  Receipt Date: 20240109
  Transmission Date: 20240410
  Serious: Yes (Death)
  Sender: FDA-Public Use
  Company Number: None

PATIENT
  Age: 44 Year
  Sex: Male
  Weight: 104.33 kg

DRUGS (1)
  1. LOSARTAN [Suspect]
     Active Substance: LOSARTAN
     Indication: Blood pressure increased
     Dosage: FREQUENCY : DAILY;?
     Route: 048
     Dates: start: 20230816, end: 20230905

REACTIONS (6)
  - Headache [None]
  - Confusional state [None]
  - Blood pressure inadequately controlled [None]
  - Memory impairment [None]
  - Completed suicide [None]
  - Intentional overdose [None]

NARRATIVE: CASE EVENT DATE: 20230816
